FAERS Safety Report 17110681 (Version 1)
Quarter: 2019Q4

REPORT INFORMATION
  Report Type: Spontaneous
  Country: FR (occurrence: FR)
  Receive Date: 20191204
  Receipt Date: 20191204
  Transmission Date: 20200122
  Serious: Yes (Other)
  Sender: FDA-Public Use
  Company Number: FR-MYLANLABS-2019M1117496

PATIENT
  Age: 27 Year
  Sex: Male
  Weight: 65 kg

DRUGS (1)
  1. FINASTERIDA MYLAN [Suspect]
     Active Substance: FINASTERIDE
     Indication: ALOPECIA
     Dosage: 1 MILLIGRAM
     Route: 048
     Dates: start: 20190126, end: 20190129

REACTIONS (6)
  - Suicidal ideation [Unknown]
  - Insomnia [Unknown]
  - Sexual dysfunction [Unknown]
  - Disturbance in attention [Unknown]
  - Loss of libido [Unknown]
  - Anxiety [Unknown]

NARRATIVE: CASE EVENT DATE: 20190130
